FAERS Safety Report 9719903 (Version 2)
Quarter: 2014Q1

REPORT INFORMATION
  Report Type: Report from Study
  Country: FR (occurrence: FR)
  Receive Date: 20131128
  Receipt Date: 20140103
  Transmission Date: 20141002
  Serious: Yes (Other)
  Sender: FDA-Public Use
  Company Number: FR-CELGENEUS-056-21880-13113420

PATIENT
  Sex: 0

DRUGS (8)
  1. REVLIMID [Suspect]
     Indication: B-CELL LYMPHOMA
     Dosage: 12.5 MILLIGRAM
     Route: 048
  2. CYCLOPHOSPHAMIDE [Suspect]
     Indication: LYMPHOMA
     Route: 065
  3. ADRIAMYCIN [Suspect]
     Indication: LYMPHOMA
     Route: 065
  4. VINCRISTINE [Suspect]
     Indication: LYMPHOMA
     Route: 065
  5. PREDNISONE [Suspect]
     Indication: LYMPHOMA
     Route: 065
  6. RITUXIMAB [Concomitant]
     Indication: PRODUCT USED FOR UNKNOWN INDICATION
     Route: 065
  7. PEGFILGRASTIM [Concomitant]
     Indication: PRODUCT USED FOR UNKNOWN INDICATION
     Route: 065
  8. ASPIRINE [Concomitant]
     Indication: PRODUCT USED FOR UNKNOWN INDICATION
     Route: 065

REACTIONS (8)
  - Thrombosis [Unknown]
  - Neutropenia [Unknown]
  - Thrombocytopenia [Unknown]
  - Febrile neutropenia [Unknown]
  - Skin toxicity [Unknown]
  - Peripheral sensory neuropathy [Unknown]
  - B-cell small lymphocytic lymphoma recurrent [Unknown]
  - B-cell lymphoma [Unknown]
